FAERS Safety Report 4999312-2 (Version None)
Quarter: 2006Q2

REPORT INFORMATION
  Report Type: 
  Country: None (occurrence: None)
  Receive Date: 20060511
  Receipt Date: 20060502
  Transmission Date: 20061013
  Serious: Yes (Hospitalization, Other)
  Sender: FDA-Public Use
  Company Number: FR-ABBOTT-06P-056-0332198-00

PATIENT
  Age: 73 Year
  Sex: Female

DRUGS (2)
  1. LIPANTHYL CAPSULES [Suspect]
     Indication: DRUG USE FOR UNKNOWN INDICATION
     Route: 048
     Dates: start: 20040624
  2. HYDROXYCARBAMIDE [Concomitant]
     Indication: DRUG USE FOR UNKNOWN INDICATION
     Dates: start: 20040124

REACTIONS (1)
  - MALIGNANT MELANOMA STAGE I [None]
